FAERS Safety Report 14698364 (Version 1)
Quarter: 2018Q1

REPORT INFORMATION
  Report Type: Spontaneous
  Country: GB (occurrence: GB)
  Receive Date: 20180330
  Receipt Date: 20180330
  Transmission Date: 20180509
  Serious: Yes (Disabling)
  Sender: FDA-Public Use
  Company Number: GB-009507513-1803GBR009794

PATIENT
  Sex: Female

DRUGS (7)
  1. QUININE SULFATE. [Suspect]
     Active Substance: QUININE SULFATE
  2. RAMIPRIL. [Suspect]
     Active Substance: RAMIPRIL
  3. PROPRANOLOL [Suspect]
     Active Substance: PROPRANOLOL HYDROCHLORIDE
  4. SIMVASTATIN. [Suspect]
     Active Substance: SIMVASTATIN
  5. MADOPAR [Suspect]
     Active Substance: BENSERAZIDE HYDROCHLORIDE\LEVODOPA
  6. DITROPAN [Suspect]
     Active Substance: OXYBUTYNIN CHLORIDE
  7. ZAPAIN [Suspect]
     Active Substance: ACETAMINOPHEN\CODEINE PHOSPHATE

REACTIONS (2)
  - Tooth loss [Not Recovered/Not Resolved]
  - Dry mouth [Unknown]

NARRATIVE: CASE EVENT DATE: 2017
